FAERS Safety Report 16483054 (Version 1)
Quarter: 2019Q2

REPORT INFORMATION
  Report Type: Spontaneous
  Country: US (occurrence: US)
  Receive Date: 20190515
  Receipt Date: 20190515
  Transmission Date: 20190711
  Serious: Yes (Life-Threatening, Hospitalization, Other)
  Sender: FDA-Public Use
  Company Number: None

PATIENT
  Age: 63 Year
  Sex: Female
  Weight: 56.7 kg

DRUGS (3)
  1. 12.5 HCTZ [Suspect]
     Active Substance: HYDROCHLOROTHIAZIDE
  2. PREPOPIK [Suspect]
     Active Substance: ANHYDROUS CITRIC ACID\MAGNESIUM OXIDE\SODIUM PICOSULFATE
  3. AMLODIPINE-OLMESARTAN [Concomitant]

REACTIONS (2)
  - Syncope [None]
  - Facial bones fracture [None]

NARRATIVE: CASE EVENT DATE: 20171112
